FAERS Safety Report 17195942 (Version 1)
Quarter: 2019Q4

REPORT INFORMATION
  Report Type: Spontaneous
  Country: JP (occurrence: JP)
  Receive Date: 20191224
  Receipt Date: 20191224
  Transmission Date: 20200122
  Serious: Yes (Death)
  Sender: FDA-Public Use
  Company Number: JP-TEVA-2019-JP-1159144

PATIENT
  Age: 50 Year
  Sex: Male
  Weight: 81.7 kg

DRUGS (2)
  1. IBUPROFEN. [Suspect]
     Active Substance: IBUPROFEN
     Route: 065
  2. LOXOPROFEN [Suspect]
     Active Substance: LOXOPROFEN
     Indication: MUSCULOSKELETAL PAIN
     Route: 048

REACTIONS (5)
  - Type I hypersensitivity [Fatal]
  - Kounis syndrome [Fatal]
  - Arteritis coronary [Fatal]
  - Cardiopulmonary failure [Fatal]
  - Eosinophilia [Fatal]
